FAERS Safety Report 21722907 (Version 1)
Quarter: 2022Q4

REPORT INFORMATION
  Report Type: Spontaneous
  Country: US (occurrence: None)
  Receive Date: 20221212
  Receipt Date: 20221212
  Transmission Date: 20230113
  Serious: Yes (unspecified)
  Sender: FDA-Public Use
  Company Number: None

PATIENT
  Age: 58 Year
  Sex: Female
  Weight: 66.15 kg

DRUGS (1)
  1. NITROFURANTOIN MONO [Suspect]
     Active Substance: NITROFURANTOIN\NITROFURANTOIN MONOHYDRATE
     Indication: Cystitis
     Dosage: OTHER QUANTITY : 14 CAPSULE(S);?FREQUENCY : TWICE A DAY;?
     Route: 048
     Dates: start: 20221209, end: 20221210

REACTIONS (8)
  - Chills [None]
  - Headache [None]
  - Loss of consciousness [None]
  - Dyspnoea [None]
  - Vomiting [None]
  - Nausea [None]
  - Cough [None]
  - Gait disturbance [None]

NARRATIVE: CASE EVENT DATE: 20221209
